FAERS Safety Report 24972532 (Version 4)
Quarter: 2025Q2

REPORT INFORMATION
  Report Type: Report from Study
  Country: US (occurrence: US)
  Receive Date: 20250215
  Receipt Date: 20250603
  Transmission Date: 20250717
  Serious: Yes (Hospitalization, Other)
  Sender: NOVARTIS
  Company Number: US-002147023-NVSC2025US024889

PATIENT
  Sex: Female

DRUGS (1)
  1. KESIMPTA [Suspect]
     Active Substance: OFATUMUMAB
     Indication: Product used for unknown indication
     Route: 065

REACTIONS (8)
  - Central nervous system infection [Unknown]
  - Pneumonia [Unknown]
  - Memory impairment [Unknown]
  - White blood cell count decreased [Unknown]
  - Hypotension [Unknown]
  - Tremor [Unknown]
  - Influenza [Unknown]
  - Injection site bruising [Unknown]
